FAERS Safety Report 9921898 (Version 2)
Quarter: 2014Q1

REPORT INFORMATION
  Report Type: Spontaneous
  Country: JP (occurrence: JP)
  Receive Date: 20140225
  Receipt Date: 20140225
  Transmission Date: 20141002
  Serious: Yes (Other)
  Sender: FDA-Public Use
  Company Number: JP-PFIZER INC-2014051066

PATIENT
  Age: 74 Year
  Sex: Male

DRUGS (5)
  1. AMLODIN [Suspect]
     Indication: HYPERTENSION
     Dosage: UNK
  2. GLIMEPIRIDE [Suspect]
     Dosage: UNK
  3. PRAVASTATIN SODIUM [Suspect]
     Dosage: UNK
  4. METFORMIN HYDROCHLORIDE [Suspect]
     Indication: DIABETES MELLITUS
     Dosage: UNK
  5. CANDESARTAN CILEXETIL [Suspect]
     Dosage: UNK

REACTIONS (1)
  - Drug-induced liver injury [Recovered/Resolved]
